FAERS Safety Report 12638214 (Version 1)
Quarter: 2016Q3

REPORT INFORMATION
  Report Type: Spontaneous
  Country: US (occurrence: US)
  Receive Date: 20160809
  Receipt Date: 20160809
  Transmission Date: 20161109
  Serious: No
  Sender: FDA-Public Use
  Company Number: US-SA-2016SA127346

PATIENT
  Age: 74 Year
  Sex: Male

DRUGS (14)
  1. BRIMONIDINE [Concomitant]
     Active Substance: BRIMONIDINE TARTRATE
     Dosage: FORM AND STRENGTH: 0.2 % OPHTHALMIC SOLUTION
  2. ALIROCUMAB PREFILLED PEN [Concomitant]
     Active Substance: ALIROCUMAB
  3. METHOCARBAMOL. [Concomitant]
     Active Substance: METHOCARBAMOL
     Dosage: STRENGTH: 500 MG
  4. METOPROLOL. [Concomitant]
     Active Substance: METOPROLOL
     Dosage: STRENGTH: 25 MG
  5. FLUTICASONE [Concomitant]
     Active Substance: FLUTICASONE\FLUTICASONE PROPIONATE
     Dosage: FORM AND STRENGTH: 50 MCG SPRAY
  6. PRALUENT [Suspect]
     Active Substance: ALIROCUMAB
     Route: 058
  7. TIMOLOL. [Concomitant]
     Active Substance: TIMOLOL
     Dosage: STRENGTH: 0.25% OPHTHALMIC SOLUTION
  8. ZETIA [Concomitant]
     Active Substance: EZETIMIBE
     Dosage: STRENGTH: 10 MG
  9. CLOPIDOGREL [Concomitant]
     Active Substance: CLOPIDOGREL BISULFATE
     Dosage: STRENGTH: 75 MG
  10. IPRATROPIUM [Concomitant]
     Active Substance: IPRATROPIUM
     Dosage: FORM AND STRENGTH: 0.06% SPRAY
  11. HYDROCODONE BITARTRATE AND ACETAMINOPHEN [Concomitant]
     Active Substance: ACETAMINOPHEN\HYDROCODONE BITARTRATE
     Dosage: STRENGTH: 10-325 MG
  12. LATANOPROST. [Concomitant]
     Active Substance: LATANOPROST
     Dosage: FORM AND STRENGTH: 0.005 % SOLUTION
  13. LISINOPRIL. [Concomitant]
     Active Substance: LISINOPRIL
     Dosage: STRENGTH: 10 MG
  14. MELOXICAM. [Concomitant]
     Active Substance: MELOXICAM
     Dosage: STRENGTH: 15 MG

REACTIONS (2)
  - Injury associated with device [Unknown]
  - Wrong technique in product usage process [Unknown]

NARRATIVE: CASE EVENT DATE: 20160704
